FAERS Safety Report 8233534-2 (Version None)
Quarter: 2012Q1

REPORT INFORMATION
  Report Type: 
  Country: None (occurrence: None)
  Receive Date: 20120326
  Receipt Date: 20120316
  Transmission Date: 20120608
  Serious: Yes (Hospitalization)
  Sender: FDA-Public Use
  Company Number: US-US-EMD SERONO, INC.-7119976

PATIENT
  Sex: Female

DRUGS (5)
  1. LYRICA [Concomitant]
     Indication: MUSCLE SPASTICITY
  2. ZOLPIDEM [Concomitant]
     Indication: SLEEP DISORDER
  3. FAMOTIDINE [Concomitant]
     Indication: GASTRIC DISORDER
  4. DIPHENOXYLATE [Concomitant]
     Indication: DIARRHOEA
  5. REBIF [Suspect]
     Indication: MULTIPLE SCLEROSIS
     Route: 058
     Dates: end: 20120305

REACTIONS (2)
  - GASTROENTERITIS [None]
  - LIVER INJURY [None]
